FAERS Safety Report 18376893 (Version 1)
Quarter: 2020Q4

REPORT INFORMATION
  Report Type: Spontaneous
  Country: US (occurrence: US)
  Receive Date: 20201012
  Receipt Date: 20201012
  Transmission Date: 20210114
  Serious: Yes (Life-Threatening, Hospitalization)
  Sender: FDA-Public Use
  Company Number: None

PATIENT
  Age: 44 Year
  Sex: Female
  Weight: 63.45 kg

DRUGS (2)
  1. STELARA [Suspect]
     Active Substance: USTEKINUMAB
     Indication: CROHN^S DISEASE
     Dosage: OTHER FREQUENCY:ONCE;?
     Route: 042
     Dates: start: 20200708, end: 20200805
  2. STELARA [Concomitant]
     Active Substance: USTEKINUMAB
     Dates: start: 20200708, end: 20200805

REACTIONS (1)
  - Pericarditis [None]

NARRATIVE: CASE EVENT DATE: 20200806
